FAERS Safety Report 5826259-1 (Version None)
Quarter: 2008Q3

REPORT INFORMATION
  Report Type: 
  Country: None (occurrence: None)
  Receive Date: 20080729
  Receipt Date: 20080717
  Transmission Date: 20090109
  Serious: Yes (Other)
  Sender: FDA-Public Use
  Company Number: US-PFIZER INC-2008051503

PATIENT
  Sex: Female
  Weight: 66.7 kg

DRUGS (2)
  1. CHANTIX [Suspect]
     Indication: SMOKING CESSATION THERAPY
     Route: 048
     Dates: start: 20080601, end: 20080610
  2. LORAZEPAM [Concomitant]

REACTIONS (2)
  - OVERDOSE [None]
  - PARANOIA [None]
